FAERS Safety Report 7008186-X (Version None)
Quarter: 2010Q3

REPORT INFORMATION
  Report Type: 
  Country: None (occurrence: None)
  Receive Date: 20100922
  Receipt Date: 20100916
  Transmission Date: 20110219
  Serious: Yes (Hospitalization)
  Sender: FDA-Public Use
  Company Number: US-B.I. PHARMACEUTICALS,INC./RIDGEFIELD-2010-BP-10493BP

PATIENT
  Age: 80 Year
  Sex: Male

DRUGS (2)
  1. DULCOLAX [Suspect]
     Indication: CONSTIPATION
     Route: 048
     Dates: start: 20100501, end: 20100701
  2. DULCOLAX [Suspect]
     Route: 048
     Dates: start: 20100701

REACTIONS (3)
  - BENIGN PROSTATIC HYPERPLASIA [None]
  - CONSTIPATION [None]
  - DIARRHOEA [None]
